FAERS Safety Report 7218968-7 (Version None)
Quarter: 2011Q1

REPORT INFORMATION
  Report Type: 
  Country: None (occurrence: None)
  Receive Date: 20110111
  Receipt Date: 20101230
  Transmission Date: 20110831
  Serious: Yes (Other)
  Sender: FDA-Public Use
  Company Number: US-BIOGENIDEC-2011BI000335

PATIENT
  Age: 59 Year
  Sex: Female

DRUGS (5)
  1. ZOLOFT [Concomitant]
  2. TYSABRI [Suspect]
     Indication: MULTIPLE SCLEROSIS
     Route: 042
     Dates: start: 20101101
  3. VALIUM [Concomitant]
  4. SEROQUEL [Concomitant]
  5. RESTORIL [Concomitant]

REACTIONS (3)
  - SUICIDAL IDEATION [None]
  - INTENTIONAL SELF-INJURY [None]
  - HYPOAESTHESIA [None]
